FAERS Safety Report 9030877 (Version 1)
Quarter: 2013Q1

REPORT INFORMATION
  Report Type: Report from Study
  Country: CR (occurrence: CR)
  Receive Date: 20130123
  Receipt Date: 20130123
  Transmission Date: 20140127
  Serious: Yes (Other)
  Sender: FDA-Public Use
  Company Number: CR-ROCHE-1181965

PATIENT
  Age: 55 Year
  Sex: Female

DRUGS (3)
  1. BONVIVA [Suspect]
     Indication: OSTEOPOROSIS
     Route: 048
     Dates: start: 2010
  2. AMLODIPINE [Concomitant]
  3. ASPIRIN [Concomitant]

REACTIONS (1)
  - Upper limb fracture [Unknown]
